FAERS Safety Report 5069473-8 (Version None)
Quarter: 2006Q3

REPORT INFORMATION
  Report Type: 
  Country: None (occurrence: None)
  Receive Date: 20060731
  Receipt Date: 20060721
  Transmission Date: 20061208
  Serious: Yes (Other)
  Sender: FDA-Public Use
  Company Number: 2006-07-1844

PATIENT
  Age: 55 Year
  Sex: Female
  Weight: 83.9154 kg

DRUGS (8)
  1. PEG-INTRON (PEGINETERFERON ALFA-2B)REDIPEN [Suspect]
     Indication: HEPATITIS B
     Dosage: SUBCUTANEOUS
     Route: 058
     Dates: start: 20050926
  2. PEG-INTRON (PEGINETERFERON ALFA-2B)REDIPEN [Suspect]
     Indication: HEPATITIS C
     Dosage: SUBCUTANEOUS
     Route: 058
     Dates: start: 20050926
  3. RIBASPHERE [Suspect]
     Indication: HEPATITIS B
     Dates: start: 20050926
  4. RIBASPHERE [Suspect]
     Indication: HEPATITIS C
     Dates: start: 20050926
  5. EVISTA [Concomitant]
     Indication: HEPATITIS B
  6. EVISTA [Concomitant]
     Indication: HEPATITIS C
  7. HYDROCHLOROTHIAZIDE TABLETS [Concomitant]
  8. PREVACID SUSTAINED RELEASE CAPSULES [Concomitant]

REACTIONS (12)
  - AGITATION [None]
  - BALANCE DISORDER [None]
  - BONE PAIN [None]
  - CONTUSION [None]
  - DIARRHOEA [None]
  - FALL [None]
  - FATIGUE [None]
  - MEMORY IMPAIRMENT [None]
  - MUSCLE SPASMS [None]
  - OCULAR ICTERUS [None]
  - VOMITING [None]
  - WEIGHT DECREASED [None]
